FAERS Safety Report 8589743-6 (Version None)
Quarter: 2012Q3

REPORT INFORMATION
  Report Type: 
  Country: None (occurrence: None)
  Receive Date: 20120813
  Receipt Date: 20120802
  Transmission Date: 20120928
  Serious: Yes (Disabling)
  Sender: FDA-Public Use
  Company Number: DE-CELGENEUS-062-21660-12071269

PATIENT
  Age: 46 Year
  Sex: Female
  Weight: 55 kg

DRUGS (12)
  1. AVASTIN [Suspect]
  2. DEXAMETHASONE [Concomitant]
     Dosage: 4 MILLIGRAM
     Route: 065
     Dates: start: 20110101
  3. ABRAXANE [Suspect]
     Indication: BREAST CANCER
     Dosage: 17.1429 MILLIGRAM/SQ. METER
     Route: 065
     Dates: start: 20120524, end: 20120628
  4. ABRAXANE [Suspect]
  5. ABRAXANE [Suspect]
  6. AVASTIN [Suspect]
  7. LEVOTHYROXINE SODIUM [Concomitant]
     Indication: HYPOTHYROIDISM
     Dosage: 100 UNKNOWN
     Route: 065
  8. ABRAXANE [Suspect]
  9. IBANDRONATE SODIUM [Concomitant]
     Dosage: .2143 MILLIGRAM
     Route: 065
     Dates: start: 20110928
  10. ENOXAPARIN SODIUM [Concomitant]
     Indication: DEEP VEIN THROMBOSIS
     Dosage: .8 UNKNOWN
     Route: 065
     Dates: start: 20111110
  11. METOPROLOL TARTRATE [Concomitant]
     Indication: HYPERTENSION
     Dosage: 47.5 UNKNOWN
     Route: 065
     Dates: start: 20111108
  12. AVASTIN [Suspect]
     Dosage: .7143 MILLIGRAM
     Route: 065
     Dates: start: 20120425

REACTIONS (2)
  - OPTIC ATROPHY [None]
  - BLINDNESS UNILATERAL [None]
